FAERS Safety Report 4304239-5 (Version None)
Quarter: 2004Q1

REPORT INFORMATION
  Report Type: 
  Country: None (occurrence: None)
  Receive Date: 20040224
  Receipt Date: 20040209
  Transmission Date: 20041129
  Serious: Yes (Hospitalization, Other)
  Sender: FDA-Public Use
  Company Number: US-JNJFOC-20030905665

PATIENT
  Age: 48 Year
  Sex: Female

DRUGS (35)
  1. REMICADE [Suspect]
     Indication: RHEUMATOID ARTHRITIS
     Dosage: SEE IMAGE
     Route: 042
     Dates: start: 20010202
  2. REMICADE [Suspect]
     Indication: SJOGREN'S SYNDROME
     Dosage: SEE IMAGE
     Route: 042
     Dates: start: 20010202
  3. REMICADE [Suspect]
     Indication: RHEUMATOID ARTHRITIS
     Dosage: SEE IMAGE
     Route: 042
     Dates: start: 20010703
  4. REMICADE [Suspect]
     Indication: SJOGREN'S SYNDROME
     Dosage: SEE IMAGE
     Route: 042
     Dates: start: 20010703
  5. REMICADE [Suspect]
     Indication: RHEUMATOID ARTHRITIS
     Dosage: SEE IMAGE
     Route: 042
     Dates: start: 20020218
  6. REMICADE [Suspect]
     Indication: SJOGREN'S SYNDROME
     Dosage: SEE IMAGE
     Route: 042
     Dates: start: 20020218
  7. REMICADE [Suspect]
     Indication: RHEUMATOID ARTHRITIS
     Dosage: SEE IMAGE
     Route: 042
     Dates: start: 20020401
  8. REMICADE [Suspect]
     Indication: SJOGREN'S SYNDROME
     Dosage: SEE IMAGE
     Route: 042
     Dates: start: 20020401
  9. REMICADE [Suspect]
     Indication: RHEUMATOID ARTHRITIS
     Dosage: SEE IMAGE
     Route: 042
     Dates: start: 20020513
  10. REMICADE [Suspect]
     Indication: SJOGREN'S SYNDROME
     Dosage: SEE IMAGE
     Route: 042
     Dates: start: 20020513
  11. REMICADE [Suspect]
     Indication: RHEUMATOID ARTHRITIS
     Dosage: SEE IMAGE
     Route: 042
     Dates: start: 20020625
  12. REMICADE [Suspect]
     Indication: SJOGREN'S SYNDROME
     Dosage: SEE IMAGE
     Route: 042
     Dates: start: 20020625
  13. REMICADE [Suspect]
     Indication: RHEUMATOID ARTHRITIS
     Dosage: SEE IMAGE
     Route: 042
     Dates: start: 20020801
  14. REMICADE [Suspect]
     Indication: SJOGREN'S SYNDROME
     Dosage: SEE IMAGE
     Route: 042
     Dates: start: 20020801
  15. REMICADE [Suspect]
     Indication: RHEUMATOID ARTHRITIS
     Dosage: SEE IMAGE
     Route: 042
     Dates: start: 20020912
  16. REMICADE [Suspect]
     Indication: SJOGREN'S SYNDROME
     Dosage: SEE IMAGE
     Route: 042
     Dates: start: 20020912
  17. REMICADE [Suspect]
     Indication: RHEUMATOID ARTHRITIS
     Dosage: SEE IMAGE
     Route: 042
     Dates: start: 20021028
  18. REMICADE [Suspect]
     Indication: SJOGREN'S SYNDROME
     Dosage: SEE IMAGE
     Route: 042
     Dates: start: 20021028
  19. REMICADE [Suspect]
     Indication: RHEUMATOID ARTHRITIS
     Dosage: SEE IMAGE
     Route: 042
     Dates: start: 20021227
  20. REMICADE [Suspect]
     Indication: SJOGREN'S SYNDROME
     Dosage: SEE IMAGE
     Route: 042
     Dates: start: 20021227
  21. REMICADE [Suspect]
     Indication: RHEUMATOID ARTHRITIS
     Dosage: SEE IMAGE
     Route: 042
     Dates: start: 20030211
  22. REMICADE [Suspect]
     Indication: SJOGREN'S SYNDROME
     Dosage: SEE IMAGE
     Route: 042
     Dates: start: 20030211
  23. REMICADE [Suspect]
     Indication: RHEUMATOID ARTHRITIS
     Dosage: SEE IMAGE
     Route: 042
     Dates: start: 20030324
  24. REMICADE [Suspect]
     Indication: SJOGREN'S SYNDROME
     Dosage: SEE IMAGE
     Route: 042
     Dates: start: 20030324
  25. REMICADE [Suspect]
     Indication: RHEUMATOID ARTHRITIS
     Dosage: SEE IMAGE
     Route: 042
     Dates: start: 20030505
  26. REMICADE [Suspect]
     Indication: SJOGREN'S SYNDROME
     Dosage: SEE IMAGE
     Route: 042
     Dates: start: 20030505
  27. REMICADE [Suspect]
     Indication: RHEUMATOID ARTHRITIS
     Dosage: SEE IMAGE
     Route: 042
     Dates: start: 20030606
  28. REMICADE [Suspect]
     Indication: SJOGREN'S SYNDROME
     Dosage: SEE IMAGE
     Route: 042
     Dates: start: 20030606
  29. REMICADE [Suspect]
     Indication: RHEUMATOID ARTHRITIS
     Dosage: SEE IMAGE
     Route: 042
     Dates: start: 20030721
  30. REMICADE [Suspect]
     Indication: SJOGREN'S SYNDROME
     Dosage: SEE IMAGE
     Route: 042
     Dates: start: 20030721
  31. REMICADE [Suspect]
  32. METHOTREXATE [Concomitant]
  33. MOBIC [Concomitant]
  34. FOLIC ACID [Concomitant]
  35. LEUCOVORIN CALCIUM [Concomitant]

REACTIONS (10)
  - ACUTE PROMYELOCYTIC LEUKAEMIA [None]
  - BONE MARROW DEPRESSION [None]
  - CONJUNCTIVAL HAEMORRHAGE [None]
  - CONTUSION [None]
  - DEEP VEIN THROMBOSIS [None]
  - ECCHYMOSIS [None]
  - OEDEMA PERIPHERAL [None]
  - PANCYTOPENIA [None]
  - RHEUMATOID ARTHRITIS [None]
  - URINARY TRACT INFECTION [None]
